FAERS Safety Report 4589974-6 (Version None)
Quarter: 2005Q1

REPORT INFORMATION
  Report Type: 
  Country: None (occurrence: None)
  Receive Date: 20050125
  Receipt Date: 20041116
  Transmission Date: 20050727
  Serious: No
  Sender: FDA-Public Use
  Company Number: USA040773515

PATIENT
  Age: 76 Year
  Sex: Female
  Weight: 52 kg

DRUGS (1)
  1. FORTEO [Suspect]
     Indication: OSTEOPOROSIS
     Dosage: 20 UG/L DAY
     Dates: start: 20040712, end: 20040722

REACTIONS (9)
  - ABDOMINAL DISTENSION [None]
  - ABDOMINAL PAIN [None]
  - ASTHENIA [None]
  - DIARRHOEA [None]
  - DIZZINESS [None]
  - HEADACHE [None]
  - NAUSEA [None]
  - PYREXIA [None]
  - VOMITING [None]
